FAERS Safety Report 20100050 (Version 2)
Quarter: 2021Q4

REPORT INFORMATION
  Report Type: Spontaneous
  Country: US (occurrence: US)
  Receive Date: 20211123
  Receipt Date: 20211208
  Transmission Date: 20220303
  Serious: Yes (Other)
  Sender: FDA-Public Use
  Company Number: US-NOVOPROD-868356

PATIENT
  Sex: Female

DRUGS (4)
  1. OZEMPIC [Suspect]
     Active Substance: SEMAGLUTIDE
     Dosage: UNK
     Route: 058
     Dates: start: 2021, end: 20211109
  2. OZEMPIC [Suspect]
     Active Substance: SEMAGLUTIDE
     Dosage: 1 MG
     Route: 058
     Dates: start: 20211110
  3. OZEMPIC [Suspect]
     Active Substance: SEMAGLUTIDE
     Indication: Weight decreased
     Dosage: 0.25 MG
     Route: 058
     Dates: start: 20210803, end: 2021
  4. OZEMPIC [Suspect]
     Active Substance: SEMAGLUTIDE
     Dosage: 0.5 MG
     Route: 058
     Dates: start: 202109, end: 2021

REACTIONS (18)
  - Liver function test increased [Recovered/Resolved]
  - Chest pain [Unknown]
  - Hyperhidrosis [Unknown]
  - Lipase decreased [Unknown]
  - Nephrolithiasis [Recovered/Resolved]
  - Cardiac disorder [Unknown]
  - Small intestinal obstruction [Unknown]
  - Lipase increased [Recovered/Resolved]
  - Abdominal pain upper [Unknown]
  - Vomiting projectile [Recovered/Resolved]
  - Hunger [Unknown]
  - Increased appetite [Unknown]
  - Thirst decreased [Unknown]
  - Binge eating [Unknown]
  - Renal cyst [Unknown]
  - Uterine leiomyoma [Unknown]
  - Product use in unapproved indication [Not Recovered/Not Resolved]
  - Flatulence [Unknown]

NARRATIVE: CASE EVENT DATE: 20210101
